FAERS Safety Report 24040121 (Version 1)
Quarter: 2024Q3

REPORT INFORMATION
  Report Type: Other
  Country: FR (occurrence: FR)
  Receive Date: 20240702
  Receipt Date: 20240702
  Transmission Date: 20241016
  Serious: Yes (Other)
  Sender: ASTELLAS
  Company Number: FR-ASTELLAS-2024US018629

PATIENT
  Age: 67 Year
  Sex: Male

DRUGS (2)
  1. ISAVUCONAZOLE [Suspect]
     Active Substance: ISAVUCONAZOLE
     Indication: Oxygen saturation decreased
     Route: 048
     Dates: start: 20240419
  2. ALBUTEROL [Suspect]
     Active Substance: ALBUTEROL
     Indication: Oxygen saturation decreased
     Dosage: 5 MG/2.5 ML, THRICE DAILY
     Route: 065
     Dates: start: 20240423

REACTIONS (3)
  - Electrocardiogram QT prolonged [Not Recovered/Not Resolved]
  - Hypokalaemia [Recovered/Resolved]
  - Off label use [Unknown]

NARRATIVE: CASE EVENT DATE: 20240419
